FAERS Safety Report 11237185 (Version 1)
Quarter: 2015Q3

REPORT INFORMATION
  Report Type: Spontaneous
  Country: FR (occurrence: FR)
  Receive Date: 20150703
  Receipt Date: 20150703
  Transmission Date: 20151125
  Serious: Yes (Hospitalization)
  Sender: FDA-Public Use
  Company Number: FR-009507513-1506FRA015368

PATIENT
  Age: 86 Year
  Sex: Male

DRUGS (5)
  1. TEMODAL [Suspect]
     Active Substance: TEMOZOLOMIDE
     Indication: GLIOBLASTOMA
     Dosage: 270 MG, DURING ONE CYCLE(5DAYS) (1350MG)
     Route: 048
     Dates: start: 20150227, end: 20150516
  2. PREDNISOLONE. [Concomitant]
     Active Substance: PREDNISOLONE
     Route: 048
  3. PANTOPRAZOLE [Concomitant]
     Active Substance: PANTOPRAZOLE SODIUM
  4. ALPRAZOLAM. [Concomitant]
     Active Substance: ALPRAZOLAM
  5. TEMODAL [Suspect]
     Active Substance: TEMOZOLOMIDE
     Dosage: 320 MG, DURING ONE CYCLE (5DAYS) (1600MG)
     Route: 048
     Dates: start: 20150422

REACTIONS (2)
  - Bicytopenia [Recovering/Resolving]
  - Rectal haemorrhage [Recovered/Resolved]

NARRATIVE: CASE EVENT DATE: 201505
